FAERS Safety Report 4653179-0 (Version None)
Quarter: 2005Q2

REPORT INFORMATION
  Report Type: 
  Country: None (occurrence: None)
  Receive Date: 20050503
  Receipt Date: 20041110
  Transmission Date: 20051028
  Serious: No
  Sender: FDA-Public Use
  Company Number: 200415463BCC

PATIENT
  Sex: Female

DRUGS (1)
  1. MYCELEX-7 [Suspect]
     Indication: VAGINAL MYCOSIS
     Dosage: VAGINAL
     Route: 067

REACTIONS (2)
  - HEADACHE [None]
  - NASOPHARYNGITIS [None]
